FAERS Safety Report 18080745 (Version 2)
Quarter: 2020Q3

REPORT INFORMATION
  Report Type: Spontaneous
  Country: US (occurrence: US)
  Receive Date: 20200728
  Receipt Date: 20200911
  Transmission Date: 20201103
  Serious: No
  Sender: FDA-Public Use
  Company Number: US-GLENMARK PHARMACEUTICALS-2020GMK048824

PATIENT

DRUGS (2)
  1. NORETHINDRONE TABLETS USP, 0.35 MG [Suspect]
     Active Substance: NORETHINDRONE
     Indication: OVARIAN CYST
     Dosage: 0.35 MILLIGRAM, OD
     Route: 048
     Dates: start: 20200802
  2. NORETHINDRONE TABLETS USP, 0.35 MG [Suspect]
     Active Substance: NORETHINDRONE
     Indication: ADNEXA UTERI PAIN

REACTIONS (1)
  - Drug effective for unapproved indication [Unknown]

NARRATIVE: CASE EVENT DATE: 20200802
